FAERS Safety Report 20525068 (Version 2)
Quarter: 2022Q1

REPORT INFORMATION
  Report Type: Spontaneous
  Country: JP (occurrence: JP)
  Receive Date: 20220228
  Receipt Date: 20220325
  Transmission Date: 20220423
  Serious: Yes (Life-Threatening, Hospitalization, Other)
  Sender: FDA-Public Use
  Company Number: JP-ASTELLAS-2021JP009555

PATIENT
  Age: 49 Year
  Sex: Female
  Weight: 52 kg

DRUGS (24)
  1. PROGRAF [Suspect]
     Active Substance: TACROLIMUS
     Indication: Lupus nephritis
     Dosage: 0.5 MG, ONCE DAILY
     Route: 048
     Dates: start: 20210315, end: 20210404
  2. PROGRAF [Suspect]
     Active Substance: TACROLIMUS
     Indication: Systemic lupus erythematosus
  3. CELLCEPT [Suspect]
     Active Substance: MYCOPHENOLATE MOFETIL
     Indication: Systemic lupus erythematosus
     Dosage: UNK UNK, UNKNOWN FREQ.
     Route: 048
     Dates: end: 20200713
  4. CELLCEPT [Suspect]
     Active Substance: MYCOPHENOLATE MOFETIL
     Route: 048
     Dates: start: 20210110, end: 20210117
  5. CELLCEPT [Suspect]
     Active Substance: MYCOPHENOLATE MOFETIL
     Route: 048
     Dates: start: 20210118, end: 20210125
  6. CELLCEPT [Suspect]
     Active Substance: MYCOPHENOLATE MOFETIL
     Route: 048
     Dates: start: 20210126, end: 20210131
  7. CELLCEPT [Suspect]
     Active Substance: MYCOPHENOLATE MOFETIL
     Route: 048
     Dates: start: 20210201, end: 20210412
  8. RABEPRAZOLE SODIUM [Suspect]
     Active Substance: RABEPRAZOLE SODIUM
     Indication: Prophylaxis
     Route: 048
     Dates: start: 20210107
  9. SULFAMETHOXAZOLE\TRIMETHOPRIM [Suspect]
     Active Substance: SULFAMETHOXAZOLE\TRIMETHOPRIM
     Indication: Prophylaxis
     Route: 048
     Dates: start: 20210123, end: 20210404
  10. LOSARTAN POTASSIUM [Suspect]
     Active Substance: LOSARTAN POTASSIUM
     Indication: Systemic lupus erythematosus
     Route: 048
     Dates: start: 20210129, end: 20210404
  11. PREDNISOLONE [Suspect]
     Active Substance: PREDNISOLONE
     Indication: Systemic lupus erythematosus
     Route: 065
     Dates: end: 20200713
  12. PREDNISOLONE [Suspect]
     Active Substance: PREDNISOLONE
     Route: 065
  13. PREDNISOLONE [Suspect]
     Active Substance: PREDNISOLONE
     Route: 048
     Dates: start: 20210110, end: 20210124
  14. PREDNISOLONE [Suspect]
     Active Substance: PREDNISOLONE
     Dosage: DAILY DOSE: 50 MG, THRICE DAILY
     Route: 048
     Dates: start: 20210125, end: 20210131
  15. PREDNISOLONE [Suspect]
     Active Substance: PREDNISOLONE
     Dosage: DAILY DOSE: 40 MG, THRICE DAILY
     Route: 048
     Dates: start: 20210201, end: 20210207
  16. PREDNISOLONE [Suspect]
     Active Substance: PREDNISOLONE
     Route: 048
     Dates: start: 20210208, end: 20210227
  17. PREDNISOLONE [Suspect]
     Active Substance: PREDNISOLONE
     Dosage: DAILY DOSE: 25 MG, THRICE DAILY
     Route: 048
     Dates: start: 20210228, end: 20210314
  18. PREDNISOLONE [Suspect]
     Active Substance: PREDNISOLONE
     Dosage: DAILY DOSE: 20 MG, THRICE DAILY
     Route: 048
     Dates: start: 20210315
  19. BENLYSTA [Suspect]
     Active Substance: BELIMUMAB
     Indication: Product used for unknown indication
     Route: 058
     Dates: start: 20210208
  20. MEROPENEM [Suspect]
     Active Substance: MEROPENEM
     Indication: Product used for unknown indication
     Dosage: 2 G/DAY, UNKNOWN FREQ.
     Route: 065
     Dates: start: 20210412, end: 20210426
  21. AMPHOTERICIN B [Concomitant]
     Active Substance: AMPHOTERICIN B
     Indication: Prophylaxis
     Route: 048
     Dates: start: 20210214, end: 20210412
  22. DARBEPOETIN ALFA [Concomitant]
     Active Substance: DARBEPOETIN ALFA
     Indication: Systemic lupus erythematosus
     Route: 058
     Dates: start: 20210217, end: 20210405
  23. LENOGRASTIM [Concomitant]
     Active Substance: LENOGRASTIM
     Indication: Product used for unknown indication
     Route: 065
     Dates: start: 20210412, end: 20210419
  24. TEICOPLANIN [Concomitant]
     Active Substance: TEICOPLANIN
     Indication: Product used for unknown indication
     Route: 065
     Dates: start: 20210413, end: 20210414

REACTIONS (8)
  - Pancytopenia [Recovered/Resolved]
  - Pneumonia [Recovered/Resolved]
  - Gastroenteritis [Recovered/Resolved]
  - Renal impairment [Recovered/Resolved]
  - Back pain [Recovered/Resolved]
  - Suicidal ideation [Recovered/Resolved]
  - Suicide attempt [Recovered/Resolved]
  - Prescribed underdose [Unknown]

NARRATIVE: CASE EVENT DATE: 20210315
